FAERS Safety Report 10886906 (Version 1)
Quarter: 2015Q1

REPORT INFORMATION
  Report Type: Report from Study
  Country: DE (occurrence: DE)
  Receive Date: 20150304
  Receipt Date: 20150304
  Transmission Date: 20150721
  Serious: Yes (Hospitalization)
  Sender: FDA-Public Use
  Company Number: DE-ABBVIE-15P-062-1355795-00

PATIENT
  Age: 73 Year
  Sex: Male
  Weight: 86 kg

DRUGS (1)
  1. LUPRON DEPOT [Suspect]
     Active Substance: LEUPROLIDE ACETATE
     Indication: PROSTATE CANCER
     Route: 065
     Dates: start: 20100628

REACTIONS (1)
  - Metastases to lung [Unknown]

NARRATIVE: CASE EVENT DATE: 20121023
